FAERS Safety Report 5066697-0 (Version None)
Quarter: 2006Q3

REPORT INFORMATION
  Report Type: 
  Country: None (occurrence: None)
  Receive Date: 20060801
  Receipt Date: 20060721
  Transmission Date: 20061208
  Serious: Yes (Other)
  Sender: FDA-Public Use
  Company Number: FR-GLAXOSMITHKLINE-B0432184A

PATIENT
  Sex: Female

DRUGS (3)
  1. SERETIDE DISKUS [Suspect]
     Indication: ASTHMA
     Route: 055
     Dates: start: 20040101
  2. LUTENYL [Suspect]
     Route: 048
     Dates: end: 20060707
  3. VENTOLIN [Concomitant]
     Indication: ASTHMA
     Route: 055

REACTIONS (3)
  - APNOEA [None]
  - FATIGUE [None]
  - WHEEZING [None]
